FAERS Safety Report 6571738-5 (Version None)
Quarter: 2010Q1

REPORT INFORMATION
  Report Type: 
  Country: None (occurrence: None)
  Receive Date: 20100205
  Receipt Date: 20100128
  Transmission Date: 20100710
  Serious: Yes (Other)
  Sender: FDA-Public Use
  Company Number: DE-JNJFOC-20091103899

PATIENT
  Sex: Male

DRUGS (13)
  1. RISPERDAL [Suspect]
     Indication: PARANOIA
     Route: 048
     Dates: start: 20091027, end: 20091231
  2. RISPERDAL [Suspect]
     Route: 048
     Dates: start: 20091027, end: 20091231
  3. INVEGA [Suspect]
     Indication: DRUG USE FOR UNKNOWN INDICATION
     Route: 048
  4. INSULIN [Suspect]
     Indication: DRUG USE FOR UNKNOWN INDICATION
     Route: 065
  5. INSULIN [Suspect]
     Route: 065
  6. CYMBALTA [Concomitant]
     Indication: ANXIETY
     Route: 065
     Dates: start: 20080101
  7. CYMBALTA [Concomitant]
     Indication: DEPRESSION
     Route: 065
     Dates: start: 20080101
  8. CITALOPRAM [Concomitant]
     Indication: ANXIETY
     Route: 065
     Dates: start: 20080101
  9. CITALOPRAM [Concomitant]
     Indication: DEPRESSION
     Route: 065
     Dates: start: 20080101
  10. METFORMIN HCL [Concomitant]
     Route: 065
  11. DIURETIC [Concomitant]
     Route: 048
  12. ANTI-ASTHMATICS [Concomitant]
     Route: 048
  13. ANTIHYPERTENSIVE [Concomitant]
     Route: 048

REACTIONS (10)
  - ADVERSE EVENT [None]
  - BLOOD GLUCOSE ABNORMAL [None]
  - DIZZINESS [None]
  - FATIGUE [None]
  - HYPERHIDROSIS [None]
  - HYPOGLYCAEMIA [None]
  - NIGHTMARE [None]
  - RESTLESSNESS [None]
  - SEDATION [None]
  - SLEEP DISORDER [None]
